FAERS Safety Report 20664318 (Version 2)
Quarter: 2022Q4

REPORT INFORMATION
  Report Type: Report from Study
  Country: US (occurrence: US)
  Receive Date: 20220401
  Receipt Date: 20221019
  Transmission Date: 20230113
  Serious: Yes (Other)
  Sender: FDA-Public Use
  Company Number: US-CELGENE-USA-20220205422

PATIENT
  Age: 75 Year
  Sex: Female
  Weight: 61.2 kg

DRUGS (2)
  1. REVLIMID [Suspect]
     Active Substance: LENALIDOMIDE
     Indication: Plasma cell myeloma
     Dosage: FREQUENCY WAS 21 OUT OF 28 DAYS
     Route: 048
     Dates: start: 202201
  2. REVLIMID [Suspect]
     Active Substance: LENALIDOMIDE
     Dosage: FREQUENCY WAS 21 OUT OF 28 DAYS
     Route: 048

REACTIONS (2)
  - Dysphonia [Unknown]
  - Sinusitis [Unknown]
